FAERS Safety Report 19181195 (Version 2)
Quarter: 2021Q2

REPORT INFORMATION
  Report Type: Report from Study
  Country: CA (occurrence: CA)
  Receive Date: 20210426
  Receipt Date: 20210528
  Transmission Date: 20210717
  Serious: Yes (Hospitalization)
  Sender: FDA-Public Use
  Company Number: PHHY2016CA162754

PATIENT
  Age: 59 Year
  Sex: Female

DRUGS (7)
  1. COSENTYX [Suspect]
     Active Substance: SECUKINUMAB
     Dosage: 300 MG, QMO
     Route: 058
     Dates: start: 20190421
  2. METHOTREXATE. [Concomitant]
     Active Substance: METHOTREXATE
     Indication: PRODUCT USED FOR UNKNOWN INDICATION
     Dosage: 20 MG, QW
     Route: 058
     Dates: start: 2011
  3. COSENTYX [Suspect]
     Active Substance: SECUKINUMAB
     Indication: PSORIATIC ARTHROPATHY
     Dosage: 300 MG, QW
     Route: 058
     Dates: start: 20161123, end: 20161214
  4. COSENTYX [Suspect]
     Active Substance: SECUKINUMAB
     Dosage: 300 MG, QMO
     Route: 058
  5. COSENTYX [Suspect]
     Active Substance: SECUKINUMAB
     Dosage: 450 MG, QMO
     Route: 058
  6. COSENTYX [Suspect]
     Active Substance: SECUKINUMAB
     Dosage: 300 MG, QMO
     Route: 058
     Dates: start: 20171021
  7. COSENTYX [Suspect]
     Active Substance: SECUKINUMAB
     Dosage: 300 MG, QMO
     Route: 058
     Dates: start: 20161221

REACTIONS (13)
  - Arthralgia [Recovered/Resolved]
  - Grip strength decreased [Unknown]
  - Synovitis [Unknown]
  - Gait disturbance [Unknown]
  - Back pain [Unknown]
  - Breast cancer [Unknown]
  - Pain in extremity [Recovered/Resolved]
  - Injection site erythema [Recovering/Resolving]
  - Pain [Unknown]
  - Movement disorder [Unknown]
  - Injection site pruritus [Recovering/Resolving]
  - Dysstasia [Unknown]
  - Fatigue [Unknown]

NARRATIVE: CASE EVENT DATE: 20161123
